FAERS Safety Report 4746038-6 (Version None)
Quarter: 2005Q3

REPORT INFORMATION
  Report Type: 
  Country: None (occurrence: None)
  Receive Date: 20050816
  Receipt Date: 20050811
  Transmission Date: 20060218
  Serious: Yes (Life-Threatening, Hospitalization)
  Sender: FDA-Public Use
  Company Number: US-JNJFOC-20050803186

PATIENT
  Age: 60 Year
  Sex: Female

DRUGS (1)
  1. MOTRIN [Suspect]
     Indication: BACK PAIN

REACTIONS (2)
  - CARDIAC ARREST [None]
  - HYPERSENSITIVITY [None]
